FAERS Safety Report 9404698 (Version 1)
Quarter: 2013Q3

REPORT INFORMATION
  Report Type: Spontaneous
  Country: MX (occurrence: MX)
  Receive Date: 20130717
  Receipt Date: 20130717
  Transmission Date: 20140515
  Serious: Yes (Other)
  Sender: FDA-Public Use
  Company Number: PHHY2013MX075458

PATIENT
  Age: 81 Year
  Sex: Male

DRUGS (2)
  1. CO-DIOVAN [Suspect]
     Indication: HYPERTENSION
     Dosage: 1 DF (80/12.5MG), DAILY
     Route: 048
  2. ASPIRIN PROTECT [Concomitant]
     Dosage: 1 UKN, DAILY
     Dates: start: 1980

REACTIONS (2)
  - Prostate cancer [Not Recovered/Not Resolved]
  - Oedema peripheral [Recovered/Resolved]
